FAERS Safety Report 5528661-4 (Version None)
Quarter: 2007Q4

REPORT INFORMATION
  Report Type: 
  Country: None (occurrence: None)
  Receive Date: 20071129
  Receipt Date: 20071121
  Transmission Date: 20080405
  Serious: Yes (Other)
  Sender: FDA-Public Use
  Company Number: PHBS2007DK14497

PATIENT
  Age: 31 Year
  Sex: Female

DRUGS (3)
  1. RITALIN [Suspect]
     Indication: HYPERSOMNIA
     Dosage: 10 MG, TID
     Dates: start: 20070604
  2. EFFEXOR [Concomitant]
     Indication: DEPRESSION
     Dosage: 150 MG, BID
     Dates: start: 20050801
  3. MOTIRON (NGX) [Suspect]
     Indication: HYPERSOMNIA
     Dosage: 10 MG, TID
     Dates: start: 20070604

REACTIONS (1)
  - THROMBOSIS [None]
